FAERS Safety Report 8970185 (Version 2)
Quarter: 2012Q4

REPORT INFORMATION
  Report Type: 
  Country: US (occurrence: US)
  Receive Date: 20121217
  Receipt Date: 20121227
  Transmission Date: 20130627
  Serious: No
  Sender: FDA-Public Use
  Company Number: US-PFIZER INC-2012315368

PATIENT
  Age: 85 Year
  Sex: Female
  Weight: 63.49 kg

DRUGS (2)
  1. CELEBREX [Suspect]
     Indication: PAIN SACROILIAC
     Dosage: 200 mg, 1x/day
     Route: 048
     Dates: start: 201212
  2. ALEVE [Concomitant]
     Indication: ARTHRITIS
     Dosage: UNK, 2x/day

REACTIONS (1)
  - Drug ineffective [Unknown]
